FAERS Safety Report 25134745 (Version 1)
Quarter: 2025Q1

REPORT INFORMATION
  Report Type: Spontaneous
  Country: RU (occurrence: RU)
  Receive Date: 20250328
  Receipt Date: 20250328
  Transmission Date: 20250409
  Serious: Yes (Hospitalization, Other)
  Sender: ROCHE
  Company Number: RU-ROCHE-10000239440

PATIENT
  Age: 72 Year
  Sex: Male

DRUGS (6)
  1. ATEZOLIZUMAB [Suspect]
     Active Substance: ATEZOLIZUMAB
     Indication: Bladder cancer
     Route: 042
     Dates: start: 20220715
  2. ATEZOLIZUMAB [Suspect]
     Active Substance: ATEZOLIZUMAB
     Route: 042
     Dates: start: 20231018
  3. ATEZOLIZUMAB [Suspect]
     Active Substance: ATEZOLIZUMAB
     Route: 042
     Dates: start: 20230704
  4. ATEZOLIZUMAB [Suspect]
     Active Substance: ATEZOLIZUMAB
     Route: 042
     Dates: start: 20240926
  5. ATEZOLIZUMAB [Suspect]
     Active Substance: ATEZOLIZUMAB
     Route: 042
     Dates: start: 202405
  6. DOCETAXEL [Concomitant]
     Active Substance: DOCETAXEL

REACTIONS (14)
  - Myocardial ischaemia [Unknown]
  - Angina pectoris [Unknown]
  - Essential hypertension [Unknown]
  - Dermatitis [Recovered/Resolved]
  - Respiratory tract infection viral [Unknown]
  - Acute coronary syndrome [Unknown]
  - Atrioventricular block [Unknown]
  - Sepsis [Unknown]
  - Urticaria [Unknown]
  - Hypertensive crisis [Unknown]
  - Skin lesion [Unknown]
  - Disease progression [Unknown]
  - Anaemia [Unknown]
  - Hypertension [Unknown]

NARRATIVE: CASE EVENT DATE: 20230511
